FAERS Safety Report 8439753-4 (Version None)
Quarter: 2012Q2

REPORT INFORMATION
  Report Type: 
  Country: None (occurrence: None)
  Receive Date: 20120615
  Receipt Date: 20120607
  Transmission Date: 20120825
  Serious: Yes (Hospitalization, Other)
  Sender: FDA-Public Use
  Company Number: DE-ABBOTT-12P-062-0906948-00

PATIENT
  Sex: Male

DRUGS (3)
  1. OPIATE [Concomitant]
     Indication: PRODUCT USED FOR UNKNOWN INDICATION
  2. HUMIRA [Suspect]
     Indication: CROHN'S DISEASE
     Dosage: THERAPY BREAK
     Route: 058
     Dates: start: 20080315, end: 20120509
  3. LOPERAMIDE [Concomitant]
     Indication: PRODUCT USED FOR UNKNOWN INDICATION

REACTIONS (3)
  - PANCREATECTOMY [None]
  - CROHN'S DISEASE [None]
  - CHOLELITHIASIS [None]
